FAERS Safety Report 9595954 (Version 3)
Quarter: 2013Q4

REPORT INFORMATION
  Report Type: Spontaneous
  Country: US (occurrence: US)
  Receive Date: 20131004
  Receipt Date: 20131029
  Transmission Date: 20140711
  Serious: No
  Sender: FDA-Public Use
  Company Number: US-009507513-1310USA001844

PATIENT
  Age: 70 Year
  Sex: Female
  Weight: 59.86 kg

DRUGS (2)
  1. MIRALAX [Suspect]
     Indication: DIVERTICULUM
     Dosage: UNK, QD
     Route: 048
     Dates: start: 20130822, end: 20130918
  2. MIRALAX [Suspect]
     Indication: VOLVULUS

REACTIONS (2)
  - Incorrect drug administration duration [Unknown]
  - Product packaging quantity issue [Unknown]
